FAERS Safety Report 8473156-1 (Version None)
Quarter: 2012Q2

REPORT INFORMATION
  Report Type: 
  Country: None (occurrence: None)
  Receive Date: 20120627
  Receipt Date: 20120620
  Transmission Date: 20120825
  Serious: Yes (Death, Life-Threatening)
  Sender: FDA-Public Use
  Company Number: FR-PFIZER INC-FRWYE904220DEC06

PATIENT
  Age: 73 Year
  Sex: Male
  Weight: 70 kg

DRUGS (5)
  1. LITHIUM CARBONATE [Suspect]
     Indication: BIPOLAR DISORDER
     Dosage: 1000 MG, 1X/DAY
     Route: 048
     Dates: end: 20060120
  2. EFFEXOR [Suspect]
     Indication: BIPOLAR DISORDER
     Dosage: 100 MG, 3X/DAY
     Route: 048
     Dates: end: 20060120
  3. DEBRIDAT [Suspect]
     Indication: ABDOMINAL DISCOMFORT
     Dosage: 3 DF, 1X/DAY
     Route: 048
     Dates: start: 20060117, end: 20060120
  4. MIRTAZAPINE [Suspect]
     Indication: BIPOLAR DISORDER
     Dosage: 45 MG, 1X/DAY
     Route: 048
     Dates: end: 20060120
  5. TERCIAN [Suspect]
     Indication: BIPOLAR DISORDER
     Dosage: 25 MG, 1X/DAY
     Route: 048
     Dates: end: 20060120

REACTIONS (1)
  - VOMITING [None]
